FAERS Safety Report 6463539-3 (Version None)
Quarter: 2009Q4

REPORT INFORMATION
  Report Type: 
  Country: None (occurrence: None)
  Receive Date: 20091123
  Receipt Date: 20091106
  Transmission Date: 20100525
  Serious: Yes (Hospitalization)
  Sender: FDA-Public Use
  Company Number: AUR-APL-2009-00812

PATIENT
  Age: 52 Year
  Sex: Male

DRUGS (16)
  1. RISPERIDONE [Suspect]
     Indication: PSYCHOTIC DISORDER
     Dosage: 2MG - BID - ORAL
     Route: 048
     Dates: start: 20060914
  2. CIPRAMIL (CITALOPRAM) [Suspect]
     Indication: DEPRESSION
     Dosage: ORAL
     Route: 048
     Dates: start: 20011207, end: 20090803
  3. VALPROATE SODIUM [Suspect]
     Indication: MOOD SWINGS
     Dosage: 2200MG - ORAL
     Route: 048
     Dates: start: 20050628
  4. ASPIRIN [Concomitant]
  5. ATENOLOL [Concomitant]
  6. BISOPROLOL [Concomitant]
  7. CLOZAPINE [Concomitant]
  8. DIAZEPAM [Concomitant]
  9. DOXAZOSIN [Concomitant]
  10. IBUPROFEN [Concomitant]
  11. LACTULOSE [Concomitant]
  12. OMEPRAZOLE [Concomitant]
  13. PIRENZEPINE [Concomitant]
  14. RAMIPRIL [Concomitant]
  15. SENNA [Concomitant]
  16. SIMVASTATIN [Concomitant]

REACTIONS (2)
  - FALL [None]
  - HYPONATRAEMIA [None]
